FAERS Safety Report 5551415-X (Version None)
Quarter: 2007Q4

REPORT INFORMATION
  Report Type: 
  Country: None (occurrence: None)
  Receive Date: 20071212
  Receipt Date: 20071204
  Transmission Date: 20080405
  Serious: Yes (Hospitalization)
  Sender: FDA-Public Use
  Company Number: DE-ROCHE-378260

PATIENT
  Age: 51 Year
  Sex: Male
  Weight: 69 kg

DRUGS (53)
  1. DACLIZUMAB [Suspect]
     Dosage: 2MG/KG FIRST DOSE 24 HOURS PRE-TRANSPLANT AS PER PROTOCOL.
     Route: 042
     Dates: start: 20040819, end: 20040819
  2. DACLIZUMAB [Suspect]
     Dosage: TOTAL OF FOUR DOSES (AS PER PROTOCOL)
     Route: 042
     Dates: start: 20040902, end: 20041012
  3. MYCOPHENOLATE MOFETIL [Suspect]
     Route: 048
     Dates: start: 20040819, end: 20040826
  4. MYCOPHENOLATE MOFETIL [Suspect]
     Dosage: 1000 MG + 500 MG.
     Route: 048
     Dates: start: 20040827, end: 20040827
  5. MYCOPHENOLATE MOFETIL [Suspect]
     Dosage: 500 MG + 2 X 750 MG
     Route: 048
     Dates: start: 20040828, end: 20040828
  6. MYCOPHENOLATE MOFETIL [Suspect]
     Route: 048
     Dates: start: 20040829, end: 20040831
  7. MYCOPHENOLATE MOFETIL [Suspect]
     Route: 048
     Dates: start: 20040901, end: 20040901
  8. MYCOPHENOLATE MOFETIL [Suspect]
     Route: 048
     Dates: start: 20040902
  9. MYCOPHENOLATE MOFETIL [Suspect]
     Route: 048
     Dates: start: 20040909
  10. MYCOPHENOLATE MOFETIL [Suspect]
     Route: 048
     Dates: start: 20041005, end: 20041011
  11. MYCOPHENOLATE MOFETIL [Suspect]
     Route: 048
     Dates: start: 20041013, end: 20041017
  12. SIROLIMUS [Suspect]
     Route: 048
     Dates: start: 20040819, end: 20040821
  13. SIROLIMUS [Suspect]
     Route: 048
     Dates: start: 20040822, end: 20040823
  14. SIROLIMUS [Suspect]
     Route: 048
     Dates: start: 20040828, end: 20040830
  15. SIROLIMUS [Suspect]
     Route: 048
     Dates: start: 20040904
  16. SIROLIMUS [Suspect]
     Route: 048
     Dates: start: 20040909
  17. SIROLIMUS [Suspect]
     Route: 048
     Dates: start: 20040927, end: 20040927
  18. SIROLIMUS [Suspect]
     Route: 048
     Dates: start: 20040928
  19. SIROLIMUS [Suspect]
     Route: 048
     Dates: start: 20041005, end: 20041013
  20. SIROLIMUS [Suspect]
     Route: 048
     Dates: start: 20041016, end: 20041017
  21. SIROLIMUS [Suspect]
     Route: 048
     Dates: start: 20041023, end: 20041026
  22. PREDNISOLONE [Suspect]
     Route: 042
     Dates: start: 20040822
  23. PREDNISOLONE [Suspect]
     Route: 042
     Dates: start: 20040819, end: 20040819
  24. PREDNISOLONE [Suspect]
     Route: 042
     Dates: start: 20040820
  25. PREDNISOLONE [Suspect]
     Route: 042
     Dates: start: 20040821
  26. PREDNISOLONE [Suspect]
     Route: 042
     Dates: start: 20040823
  27. PREDNISOLONE [Suspect]
     Route: 042
     Dates: start: 20040824, end: 20040825
  28. PREDNISOLONE [Suspect]
     Route: 042
     Dates: start: 20040826
  29. PREDNISOLONE [Suspect]
     Route: 042
     Dates: start: 20040906
  30. PREDNISOLONE [Suspect]
     Route: 042
     Dates: start: 20040914
  31. PREDNISOLONE [Suspect]
     Route: 042
     Dates: start: 20040920
  32. PREDNISOLONE [Suspect]
     Route: 042
     Dates: start: 20040927
  33. PREDNISOLONE [Suspect]
     Route: 042
     Dates: start: 20041005, end: 20041008
  34. PREDNISOLONE [Suspect]
     Route: 042
     Dates: start: 20041008, end: 20041011
  35. PREDNISOLONE [Suspect]
     Route: 042
     Dates: start: 20041011, end: 20041024
  36. PREDNISOLONE [Suspect]
     Route: 042
     Dates: start: 20041024, end: 20041028
  37. PREDNISOLONE [Suspect]
     Route: 042
     Dates: start: 20041029
  38. TACROLIMUS [Suspect]
     Route: 065
     Dates: start: 20041025
  39. TACROLIMUS [Suspect]
     Route: 065
     Dates: start: 20041026
  40. TACROLIMUS [Suspect]
     Route: 065
     Dates: start: 20041029
  41. ACETYLCYSTEINE [Concomitant]
     Dates: start: 20040819, end: 20041119
  42. AMPHOTERICIN B [Concomitant]
     Dates: start: 20040819
  43. CEFUROXIME [Concomitant]
     Dates: start: 20040819
  44. DILTIAZEM [Concomitant]
     Dates: start: 20040819, end: 20040828
  45. FUROSEMIDE [Concomitant]
     Dates: start: 20040822
  46. METOPROLOL SUCCINATE [Concomitant]
     Dates: start: 20040822
  47. URAPIDIL [Concomitant]
     Dates: start: 20040821, end: 20040903
  48. VALGANCICLOVIR HCL [Concomitant]
     Dates: start: 20040820, end: 20041017
  49. AMLODIPINE [Concomitant]
     Dates: start: 20040827
  50. BISOPROLOL [Concomitant]
     Dates: start: 20040823
  51. DIHYDRALAZIN [Concomitant]
  52. PRIMAXIN [Concomitant]
     Dates: start: 20040831, end: 20041112
  53. RAMIPRIL [Concomitant]
     Dates: start: 20040910

REACTIONS (4)
  - ANAEMIA [None]
  - ARTERIAL HAEMORRHAGE [None]
  - HAEMATOMA INFECTION [None]
  - PANCYTOPENIA [None]
